FAERS Safety Report 8902973 (Version 3)
Quarter: 2012Q4

REPORT INFORMATION
  Report Type: 
  Country: TR (occurrence: TR)
  Receive Date: 20121112
  Receipt Date: 20121204
  Transmission Date: 20130627
  Serious: Yes (Hospitalization, Other)
  Sender: FDA-Public Use
  Company Number: TR-ABBOTT-12P-161-1006691-00

PATIENT
  Age: 53 Year
  Sex: Female
  Weight: 70 kg

DRUGS (2)
  1. HUMIRA [Suspect]
     Indication: PSORIASIS
     Route: 058
     Dates: start: 20110609, end: 20111201
  2. METHOTREXATE [Concomitant]
     Indication: PSORIASIS
     Dosage: 10MG WEEKLY
     Dates: start: 201105, end: 201208

REACTIONS (4)
  - Lung infiltration [Not Recovered/Not Resolved]
  - Peripheral T-cell lymphoma unspecified [Not Recovered/Not Resolved]
  - Pulmonary mass [Not Recovered/Not Resolved]
  - Cough [Not Recovered/Not Resolved]
